FAERS Safety Report 8014428-4 (Version None)
Quarter: 2011Q4

REPORT INFORMATION
  Report Type: 
  Country: None (occurrence: None)
  Receive Date: 20111229
  Receipt Date: 20111222
  Transmission Date: 20120403
  Serious: Yes (Hospitalization)
  Sender: FDA-Public Use
  Company Number: PHHY2011CA111904

PATIENT
  Sex: Male

DRUGS (2)
  1. VENTOLIN [Suspect]
  2. TOBI [Suspect]

REACTIONS (1)
  - LUNG INFECTION [None]
